FAERS Safety Report 15044681 (Version 1)
Quarter: 2018Q2

REPORT INFORMATION
  Report Type: Other
  Country: JP (occurrence: JP)
  Receive Date: 20180621
  Receipt Date: 20180621
  Transmission Date: 20180711
  Serious: Yes (Death)
  Sender: FDA-Public Use
  Company Number: JP-ACTELION-A-CH2018-174048

PATIENT
  Age: 2 Month
  Sex: Female
  Weight: 1.03 kg

DRUGS (5)
  1. TRACLEER [Suspect]
     Active Substance: BOSENTAN
     Indication: PULMONARY ARTERIAL HYPERTENSION
     Route: 048
  2. DEXAMETHASONE. [Concomitant]
     Active Substance: DEXAMETHASONE
     Indication: RESPIRATORY DISORDER
  3. NITRIC OXIDE. [Concomitant]
     Active Substance: NITRIC OXIDE
  4. DEXAMETHASONE. [Concomitant]
     Active Substance: DEXAMETHASONE
     Indication: PERSISTENT FOETAL CIRCULATION
  5. EPOPROSTENOL SODIUM. [Suspect]
     Active Substance: EPOPROSTENOL SODIUM
     Indication: PERSISTENT FOETAL CIRCULATION
     Route: 042

REACTIONS (5)
  - Therapeutic response decreased [Unknown]
  - Pyrexia [Unknown]
  - Oxygen saturation abnormal [Unknown]
  - Death [Fatal]
  - Heart rate irregular [Unknown]
